FAERS Safety Report 24360333 (Version 8)
Quarter: 2025Q2

REPORT INFORMATION
  Report Type: Spontaneous
  Country: US (occurrence: US)
  Receive Date: 20240925
  Receipt Date: 20250520
  Transmission Date: 20250716
  Serious: No
  Sender: BIOGEN
  Company Number: US-BIOGEN-2024BI01243495

PATIENT
  Age: 57 Year
  Sex: Female

DRUGS (4)
  1. AVONEX [Suspect]
     Active Substance: INTERFERON BETA-1A
     Indication: Multiple sclerosis
     Route: 050
     Dates: start: 20200925
  2. AVONEX [Suspect]
     Active Substance: INTERFERON BETA-1A
  3. AVONEX [Suspect]
     Active Substance: INTERFERON BETA-1A
  4. AVONEX [Suspect]
     Active Substance: INTERFERON BETA-1A

REACTIONS (16)
  - Neuropathy peripheral [Unknown]
  - Memory impairment [Unknown]
  - Panic attack [Unknown]
  - Tremor [Unknown]
  - Dysgraphia [Unknown]
  - Motor dysfunction [Unknown]
  - Multiple sclerosis [Unknown]
  - Oedema peripheral [Unknown]
  - Oesophageal disorder [Unknown]
  - Foreign body in throat [Unknown]
  - Choking [Unknown]
  - Dysphagia [Unknown]
  - Hypoaesthesia [Not Recovered/Not Resolved]
  - Fatigue [Unknown]
  - Malaise [Unknown]
  - Nausea [Unknown]

NARRATIVE: CASE EVENT DATE: 20250307
